FAERS Safety Report 17157568 (Version 1)
Quarter: 2019Q4

REPORT INFORMATION
  Report Type: Spontaneous
  Country: US (occurrence: US)
  Receive Date: 20191213
  Receipt Date: 20191213
  Transmission Date: 20200122
  Serious: Yes (Hospitalization)
  Sender: FDA-Public Use
  Company Number: None

PATIENT
  Age: 50 Year
  Sex: Female

DRUGS (7)
  1. HYDROCODONE/ACETAMINOPHINE [Concomitant]
  2. ZYDELIG 100MG [Concomitant]
  3. JADENU [Suspect]
     Active Substance: DEFERASIROX
     Indication: IRON OVERLOAD
     Route: 048
     Dates: start: 20191118
  4. LOSARTAN. [Concomitant]
     Active Substance: LOSARTAN
  5. FLUCONAZOLE. [Concomitant]
     Active Substance: FLUCONAZOLE
  6. OMEPRAZOLE. [Concomitant]
     Active Substance: OMEPRAZOLE
  7. ACYCLOVIR. [Concomitant]
     Active Substance: ACYCLOVIR

REACTIONS (1)
  - Full blood count decreased [None]

NARRATIVE: CASE EVENT DATE: 20191209
